FAERS Safety Report 17063326 (Version 1)
Quarter: 2019Q4

REPORT INFORMATION
  Report Type: Spontaneous
  Country: US (occurrence: US)
  Receive Date: 20191023
  Receipt Date: 20191023
  Transmission Date: 20200122
  Serious: No
  Sender: FDA-Public Use
  Company Number: None

PATIENT
  Age: 24 Year
  Sex: Female

DRUGS (1)
  1. XELJANZ [Suspect]
     Active Substance: TOFACITINIB CITRATE
     Indication: RHEUMATOID ARTHRITIS
     Route: 048
     Dates: start: 20190920

REACTIONS (5)
  - Nausea [None]
  - Diarrhoea [None]
  - Night sweats [None]
  - Therapy cessation [None]
  - Viral infection [None]

NARRATIVE: CASE EVENT DATE: 20191021
